FAERS Safety Report 15482727 (Version 1)
Quarter: 2018Q4

REPORT INFORMATION
  Report Type: Spontaneous
  Country: ES (occurrence: ES)
  Receive Date: 20181010
  Receipt Date: 20181010
  Transmission Date: 20190205
  Serious: Yes (Death)
  Sender: FDA-Public Use
  Company Number: ES-PFIZER INC-2018404669

PATIENT
  Age: 84 Year
  Sex: Male

DRUGS (2)
  1. IRINOTECAN HCL [Suspect]
     Active Substance: IRINOTECAN HYDROCHLORIDE
     Indication: ADENOCARCINOMA
     Dosage: UNK UNK, CYCLIC (6 CYCLES SCHEME FOLFIRI )
     Dates: start: 20131202, end: 20140221
  2. FLUOROURACIL. [Suspect]
     Active Substance: FLUOROURACIL
     Indication: ADENOCARCINOMA
     Dosage: UNK UNK, CYCLIC (6 CYCLES SCHEME FOLFIRI )
     Dates: start: 20131202, end: 20140221

REACTIONS (2)
  - Acute myeloid leukaemia [Fatal]
  - Second primary malignancy [Fatal]

NARRATIVE: CASE EVENT DATE: 201709
